FAERS Safety Report 7210116-2 (Version None)
Quarter: 2011Q1

REPORT INFORMATION
  Report Type: 
  Country: None (occurrence: None)
  Receive Date: 20110105
  Receipt Date: 20101228
  Transmission Date: 20110831
  Serious: Yes (Hospitalization)
  Sender: FDA-Public Use
  Company Number: GR-AMGEN-GRCNI2010004403

PATIENT

DRUGS (6)
  1. CINACALCET HYDROCHLORIDE [Suspect]
     Indication: HYPERPARATHYROIDISM SECONDARY
     Dosage: UNK MG, QD
     Route: 048
     Dates: start: 20100807
  2. LERCADIP                           /01366401/ [Concomitant]
     Dosage: UNK UNK, QD
     Route: 048
  3. GLUCOPLUS GENER [Concomitant]
     Route: 048
  4. EXTRASTATIN [Concomitant]
  5. THYROID HORMONES [Concomitant]
     Dosage: 0.05 MG, QD
  6. SALOSPIR                           /00002701/ [Concomitant]
     Route: 048

REACTIONS (1)
  - ATRIOVENTRICULAR BLOCK SECOND DEGREE [None]
